FAERS Safety Report 7994877-0 (Version None)
Quarter: 2011Q4

REPORT INFORMATION
  Report Type: 
  Country: None (occurrence: None)
  Receive Date: 20111220
  Receipt Date: 20111207
  Transmission Date: 20120403
  Serious: Yes (Other)
  Sender: FDA-Public Use
  Company Number: US-ROCHE-1020814

PATIENT

DRUGS (5)
  1. DEXAMETHASONE [Suspect]
     Indication: B-CELL LYMPHOMA
     Dosage: DAY 1-5 OF 28 DAYS CYCLE.
  2. FLUDARABINE PHOSPHATE [Suspect]
     Indication: B-CELL LYMPHOMA
     Dosage: DAY 1-3
  3. MITOXANTRONE HYDROCHLORIDE [Suspect]
     Indication: B-CELL LYMPHOMA
     Dosage: DAY 1
  4. MABTHERA [Suspect]
     Indication: B-CELL LYMPHOMA
     Dosage: ON DAY 1 AND 8 OF CYCLE 1
  5. MABTHERA [Suspect]
     Dosage: ON DAY 1

REACTIONS (6)
  - MYALGIA [None]
  - NEUTROPENIA [None]
  - THROMBOCYTOPENIA [None]
  - FATIGUE [None]
  - DYSPNOEA [None]
  - MYELODYSPLASTIC SYNDROME [None]
